FAERS Safety Report 26066076 (Version 1)
Quarter: 2025Q4

REPORT INFORMATION
  Report Type: Spontaneous
  Country: EU (occurrence: EU)
  Receive Date: 20251119
  Receipt Date: 20251119
  Transmission Date: 20260117
  Serious: Yes (Other)
  Sender: MYLAN
  Company Number: None

PATIENT
  Age: 46 Year
  Sex: Female

DRUGS (12)
  1. SERTRALINE [Interacting]
     Active Substance: SERTRALINE HYDROCHLORIDE
     Indication: Product used for unknown indication
     Dosage: UNK
  2. SERTRALINE [Interacting]
     Active Substance: SERTRALINE HYDROCHLORIDE
     Dosage: UNK
     Route: 048
  3. SERTRALINE [Interacting]
     Active Substance: SERTRALINE HYDROCHLORIDE
     Dosage: UNK
     Route: 048
  4. SERTRALINE [Interacting]
     Active Substance: SERTRALINE HYDROCHLORIDE
     Dosage: UNK
  5. FLUOXETINE [Interacting]
     Active Substance: FLUOXETINE HYDROCHLORIDE
     Indication: Product used for unknown indication
     Dosage: UNK
  6. FLUOXETINE [Interacting]
     Active Substance: FLUOXETINE HYDROCHLORIDE
     Dosage: UNK
     Route: 048
  7. FLUOXETINE [Interacting]
     Active Substance: FLUOXETINE HYDROCHLORIDE
     Dosage: UNK
     Route: 048
  8. FLUOXETINE [Interacting]
     Active Substance: FLUOXETINE HYDROCHLORIDE
     Dosage: UNK
  9. TIANEPTINE SODIUM [Interacting]
     Active Substance: TIANEPTINE SODIUM
     Indication: Product used for unknown indication
     Dosage: 12.5 MILLIGRAM, Q8H
  10. TIANEPTINE SODIUM [Interacting]
     Active Substance: TIANEPTINE SODIUM
     Dosage: 12.5 MILLIGRAM, Q8H
     Route: 048
  11. TIANEPTINE SODIUM [Interacting]
     Active Substance: TIANEPTINE SODIUM
     Dosage: 12.5 MILLIGRAM, Q8H
     Route: 048
  12. TIANEPTINE SODIUM [Interacting]
     Active Substance: TIANEPTINE SODIUM
     Dosage: 12.5 MILLIGRAM, Q8H

REACTIONS (3)
  - Extrapyramidal disorder [Unknown]
  - Condition aggravated [Unknown]
  - Medication error [Unknown]

NARRATIVE: CASE EVENT DATE: 20251006
